FAERS Safety Report 6572838-6 (Version None)
Quarter: 2010Q1

REPORT INFORMATION
  Report Type: 
  Country: None (occurrence: None)
  Receive Date: 20100205
  Receipt Date: 20100125
  Transmission Date: 20100710
  Serious: Yes (Hospitalization, Other)
  Sender: FDA-Public Use
  Company Number: KR-ELI_LILLY_AND_COMPANY-KR201001001106

PATIENT
  Age: 80 Year
  Sex: Male

DRUGS (5)
  1. HUMALOG MIX 75/25 [Suspect]
     Indication: TYPE 2 DIABETES MELLITUS
     Dosage: 25 IU, OTHER
     Route: 058
     Dates: start: 20091013
  2. HUMALOG MIX 75/25 [Suspect]
     Dosage: 20 IU, OTHER
     Route: 058
     Dates: start: 20091013
  3. HUMALOG MIX 75/25 [Suspect]
     Dosage: 25 IU, DAILY (1/D)
     Route: 058
     Dates: start: 20100104, end: 20100104
  4. DRUGS FOR TREATMENT OF TUBERCULOSIS [Concomitant]
     Indication: TUBERCULOSIS
  5. ORAL ANTIDIABETICS [Concomitant]
     Indication: TYPE 2 DIABETES MELLITUS
     Dates: end: 20090101

REACTIONS (4)
  - COLD SWEAT [None]
  - DIZZINESS [None]
  - HYPOGLYCAEMIA [None]
  - LOSS OF CONSCIOUSNESS [None]
